FAERS Safety Report 14997621 (Version 1)
Quarter: 2018Q2

REPORT INFORMATION
  Report Type: Spontaneous
  Country: US (occurrence: US)
  Receive Date: 20180519
  Receipt Date: 20180519
  Transmission Date: 20180711
  Serious: Yes (Death)
  Sender: FDA-Public Use
  Company Number: None

PATIENT
  Age: 3 Month
  Sex: Female
  Weight: 4.6 kg

DRUGS (2)
  1. ETOPOSIDE (VP-16) [Suspect]
     Active Substance: ETOPOSIDE
     Dates: end: 20180330
  2. CARBOPLATIN. [Suspect]
     Active Substance: CARBOPLATIN
     Dates: end: 20180328

REACTIONS (10)
  - Hypoxia [None]
  - Tachypnoea [None]
  - Cardio-respiratory arrest [None]
  - Hypertrophic cardiomyopathy [None]
  - Platelet count decreased [None]
  - Respiratory distress [None]
  - Pulmonary haemorrhage [None]
  - Mitral valve incompetence [None]
  - Bradycardia [None]
  - Haemoglobin decreased [None]

NARRATIVE: CASE EVENT DATE: 20180402
